FAERS Safety Report 5521357-4 (Version None)
Quarter: 2007Q4

REPORT INFORMATION
  Report Type: 
  Country: None (occurrence: None)
  Receive Date: 20071119
  Receipt Date: 20071112
  Transmission Date: 20080405
  Serious: Yes (Hospitalization)
  Sender: FDA-Public Use
  Company Number: GB-BOEHRINGER INGELHEIM PHARMACEUTICALS, INC.-2007-UK-03618UK

PATIENT
  Sex: Female

DRUGS (1)
  1. PRAMIPEXOLE DIHYDROCHLORIDE [Suspect]
     Indication: PARKINSON'S DISEASE
     Dosage: GRADUALLY TITRATED UP TP 0.7 MG THREE TIMES DAILY
     Dates: start: 20030101, end: 20050301

REACTIONS (6)
  - EUPHORIC MOOD [None]
  - HYPERSEXUALITY [None]
  - INSOMNIA [None]
  - OEDEMA [None]
  - OVERDOSE [None]
  - PATHOLOGICAL GAMBLING [None]
